FAERS Safety Report 4629292-0 (Version None)
Quarter: 2005Q2

REPORT INFORMATION
  Report Type: 
  Country: None (occurrence: None)
  Receive Date: 20050407
  Receipt Date: 20050322
  Transmission Date: 20051028
  Serious: Yes (Hospitalization)
  Sender: FDA-Public Use
  Company Number: JP-MERCK-0503USA04722

PATIENT
  Age: 56 Year
  Sex: Female

DRUGS (2)
  1. COZAAR [Suspect]
     Indication: HYPERTENSION
     Route: 048
     Dates: start: 20050310, end: 20050310
  2. COZAAR [Suspect]
     Route: 048
     Dates: start: 20050320, end: 20050320

REACTIONS (1)
  - ANAPHYLACTIC SHOCK [None]
